FAERS Safety Report 9179673 (Version 1)
Quarter: 2012Q4

REPORT INFORMATION
  Report Type: 
  Country: US (occurrence: US)
  Receive Date: 20121029
  Receipt Date: 20121029
  Transmission Date: 20130627
  Serious: Yes (Other)
  Sender: FDA-Public Use
  Company Number: US-ROCHE-1147702

PATIENT
  Sex: Female

DRUGS (2)
  1. BEVACIZUMAB [Suspect]
     Indication: BREAST CANCER METASTATIC
     Route: 065
  2. GEMCITABINE [Suspect]
     Indication: BREAST CANCER METASTATIC
     Dosage: over 30 minutes, On day 1
     Route: 042

REACTIONS (11)
  - Neutropenia [Unknown]
  - Leukopenia [Unknown]
  - Sick sinus syndrome [Unknown]
  - Thrombocytopenia [Unknown]
  - Nausea [Unknown]
  - Fatigue [Unknown]
  - Proteinuria [Unknown]
  - Hypertension [Unknown]
  - Vomiting [Unknown]
  - Thrombosis [Unknown]
  - Anaemia [Unknown]
